FAERS Safety Report 19726609 (Version 1)
Quarter: 2021Q3

REPORT INFORMATION
  Report Type: Spontaneous
  Country: US (occurrence: US)
  Receive Date: 20210820
  Receipt Date: 20210820
  Transmission Date: 20211014
  Serious: Yes (Other)
  Sender: FDA-Public Use
  Company Number: US-EMCURE PHARMACEUTICALS LTD-2021-EPL-002703

PATIENT
  Age: 11 Year
  Sex: Male

DRUGS (4)
  1. VINCRISTINE [Suspect]
     Active Substance: VINCRISTINE
     Indication: PRECURSOR B-LYMPHOBLASTIC LYMPHOMA
     Dosage: PULSES
     Route: 042
  2. 6?MERCAPTOPURINE [Suspect]
     Active Substance: MERCAPTOPURINE
     Indication: PRECURSOR B-LYMPHOBLASTIC LYMPHOMA
     Route: 048
  3. DEXAMETHASONE. [Suspect]
     Active Substance: DEXAMETHASONE
     Indication: PRECURSOR B-LYMPHOBLASTIC LYMPHOMA
     Route: 048
  4. METHOTREXATE. [Suspect]
     Active Substance: METHOTREXATE
     Indication: PRECURSOR B-LYMPHOBLASTIC LYMPHOMA
     Dosage: 100% DOSING OF ORAL METHOTREXATE
     Route: 048

REACTIONS (1)
  - Parvovirus infection [Recovering/Resolving]
